FAERS Safety Report 12245316 (Version 1)
Quarter: 2016Q2

REPORT INFORMATION
  Report Type: Spontaneous
  Country: US (occurrence: None)
  Receive Date: 20160406
  Receipt Date: 20160406
  Transmission Date: 20160815
  Serious: Yes (Hospitalization)
  Sender: FDA-Public Use
  Company Number: None

PATIENT
  Age: 60 Year
  Sex: Male
  Weight: 84.2 kg

DRUGS (2)
  1. ROSUVASTATIN. [Suspect]
     Active Substance: ROSUVASTATIN
     Dosage: 10 MG PM PO
     Route: 048
     Dates: start: 20150223, end: 20160219
  2. ROSUVASTATIN. [Suspect]
     Active Substance: ROSUVASTATIN
     Indication: HYPERLIPIDAEMIA
     Dosage: 20 MG PM PO
     Route: 048
     Dates: start: 20160219, end: 20160225

REACTIONS (3)
  - Pain [None]
  - Rash [None]
  - Respiratory distress [None]

NARRATIVE: CASE EVENT DATE: 20160225
